FAERS Safety Report 4550298-4 (Version None)
Quarter: 2004Q4

REPORT INFORMATION
  Report Type: 
  Country: None (occurrence: None)
  Receive Date: 20041227
  Receipt Date: 20041108
  Transmission Date: 20050328
  Serious: No
  Sender: FDA-Public Use
  Company Number: 04P-163-0280193-00

PATIENT
  Age: 77 Year
  Sex: Female
  Weight: 72.5755 kg

DRUGS (9)
  1. HUMIRA [Suspect]
     Indication: RHEUMATOID ARTHRITIS
     Dosage: 40 MG, 1 IN 2 WK, SUBCUTANEOUS
     Route: 058
     Dates: start: 20030401, end: 20041009
  2. METHOTREXATE [Concomitant]
  3. FOLIC ACID [Concomitant]
  4. PYRODOXIN [Concomitant]
  5. ATORVASTATIN [Concomitant]
  6. GLUCOSAMINE [Concomitant]
  7. ASPARTOFORT [Concomitant]
  8. ALFOGONE [Concomitant]
  9. TIMOLODOL MALEATE [Concomitant]

REACTIONS (1)
  - HERPES ZOSTER [None]
